FAERS Safety Report 6637909-4 (Version None)
Quarter: 2010Q1

REPORT INFORMATION
  Report Type: 
  Country: None (occurrence: None)
  Receive Date: 20100315
  Receipt Date: 20100315
  Transmission Date: 20100710
  Serious: Yes (Other)
  Sender: FDA-Public Use
  Company Number: None

PATIENT
  Sex: Female

DRUGS (1)
  1. LEXISCAN [Suspect]
     Indication: CARDIAC STRESS TEST
     Dosage: 0.4MG ODO IV BOLUS, ONE DOSE ONLY
     Route: 040
     Dates: start: 20100310, end: 20100310

REACTIONS (2)
  - CHEST PAIN [None]
  - ELECTROCARDIOGRAM CHANGE [None]
